APPROVED DRUG PRODUCT: CHOLOGRAFIN SODIUM
Active Ingredient: IODIPAMIDE SODIUM
Strength: 20%
Dosage Form/Route: INJECTABLE;INJECTION
Application: N009321 | Product #001
Applicant: BRACCO DIAGNOSTICS INC
Approved: Approved Prior to Jan 1, 1982 | RLD: No | RS: No | Type: DISCN